FAERS Safety Report 6153198-1 (Version None)
Quarter: 2009Q2

REPORT INFORMATION
  Report Type: 
  Country: None (occurrence: None)
  Receive Date: 20090413
  Receipt Date: 20090403
  Transmission Date: 20091009
  Serious: Yes (Other)
  Sender: FDA-Public Use
  Company Number: PHEH2007US05476

PATIENT
  Sex: Female

DRUGS (12)
  1. AREDIA [Suspect]
     Dosage: UNK
  2. ZOMETA [Suspect]
     Dosage: UNK
  3. FEMARA [Concomitant]
     Dosage: 2.5MG TABLET
     Dates: start: 20051101
  4. LIPITOR [Concomitant]
     Dosage: 20MG
     Dates: start: 20051001
  5. NIFEDIAC CC [Concomitant]
     Dosage: 60MG
     Dates: start: 20051101
  6. PAROXETINE HYDROCHLORIDE [Concomitant]
     Dosage: 20MG
     Dates: start: 20051101
  7. BISOPROLOL FUMARATE W/HYDROCHLOROTHIAZIDE [Concomitant]
     Dosage: UNK
     Dates: start: 20051101
  8. GABAPENTIN [Concomitant]
     Dosage: 300MG
     Dates: start: 20060501
  9. NIFEDICAL [Concomitant]
     Dosage: 60MG
     Dates: start: 20070101
  10. PENICILLIN VK [Concomitant]
     Dosage: 500MG
     Dates: start: 20070301
  11. METRONIDAZOLE [Concomitant]
     Dosage: 500MG
     Dates: start: 20070301
  12. ACETAMINOPHEN AND HYDROCODONE BITARTRATE [Concomitant]
     Dosage: UNK
     Dates: start: 20070301

REACTIONS (11)
  - ANAEMIA [None]
  - ANXIETY [None]
  - BONE OPERATION [None]
  - EXOSTOSIS [None]
  - INJURY [None]
  - OSTEONECROSIS [None]
  - PAIN [None]
  - SEQUESTRECTOMY [None]
  - SOFT TISSUE DISORDER [None]
  - SWELLING FACE [None]
  - TOOTH EXTRACTION [None]
